FAERS Safety Report 18362618 (Version 5)
Quarter: 2023Q1

REPORT INFORMATION
  Report Type: Spontaneous
  Country: ES (occurrence: ES)
  Receive Date: 20201008
  Receipt Date: 20230324
  Transmission Date: 20230417
  Serious: Yes (Death, Other)
  Sender: FDA-Public Use
  Company Number: None

PATIENT
  Age: 91 Year
  Sex: Female

DRUGS (2)
  1. ZINPLAVA [Suspect]
     Active Substance: BEZLOTOXUMAB
     Indication: Clostridium difficile infection
     Dosage: UNK, UNKNOWN FREQ.
  2. ZINPLAVA [Suspect]
     Active Substance: BEZLOTOXUMAB
     Indication: Prophylaxis

REACTIONS (1)
  - Death [Fatal]
